FAERS Safety Report 7761150-5 (Version None)
Quarter: 2011Q3

REPORT INFORMATION
  Report Type: 
  Country: None (occurrence: None)
  Receive Date: 20110920
  Receipt Date: 20110908
  Transmission Date: 20111222
  Serious: Yes (Other)
  Sender: FDA-Public Use
  Company Number: CELGENEUS-087-21880-10122465

PATIENT
  Sex: Male

DRUGS (30)
  1. PREDNISOLONE [Concomitant]
     Indication: MULTIPLE MYELOMA
     Dosage: 10 MILLIGRAM
     Route: 048
     Dates: start: 20101015, end: 20101128
  2. ALLOPURINOL [Concomitant]
     Dosage: 200 MILLIGRAM
     Route: 048
     Dates: start: 20101129, end: 20110119
  3. SULFAMETHOXAZOLE [Concomitant]
     Indication: PROPHYLAXIS
     Dosage: 480 MILLIGRAM
     Route: 048
     Dates: start: 20100803, end: 20110119
  4. TALION [Concomitant]
     Indication: PROPHYLAXIS
     Dosage: 20 MILLIGRAM
     Route: 048
     Dates: start: 20101206, end: 20110119
  5. DEXAMETHASONE [Suspect]
     Dosage: 20 MILLIGRAM
     Route: 048
     Dates: start: 20100831, end: 20100903
  6. PRIMPERAN TAB [Concomitant]
     Indication: ILL-DEFINED DISORDER
     Dosage: 15 MILLIGRAM
     Route: 048
     Dates: start: 20101015, end: 20101021
  7. ITRACONAZOLE [Concomitant]
     Indication: PROPHYLAXIS
     Dosage: 200 MILLIGRAM
     Route: 048
     Dates: start: 20101210, end: 20101223
  8. REVLIMID [Suspect]
     Dosage: 10 MILLIGRAM
     Route: 048
     Dates: start: 20101022, end: 20101111
  9. DEXAMETHASONE [Suspect]
     Dosage: 20 MILLIGRAM
     Route: 048
     Dates: start: 20100908, end: 20100911
  10. ALLOPURINOL [Concomitant]
     Indication: ILL-DEFINED DISORDER
     Dosage: 300 MILLIGRAM
     Route: 048
     Dates: start: 20101019, end: 20101128
  11. ERYTHROCYTE [Concomitant]
     Dosage: 2 UNITS
     Route: 041
     Dates: start: 20100903, end: 20110119
  12. DEXAMETHASONE [Suspect]
     Dosage: 20 MILLIGRAM
     Route: 048
     Dates: start: 20100811, end: 20100814
  13. PREDNISOLONE [Concomitant]
     Dosage: 10 MILLIGRAM
     Route: 048
     Dates: start: 20101129, end: 20110119
  14. IMMUNE GLOBULIN INTRAVENOUS (HUMAN) [Concomitant]
     Dosage: 10 GRAM
     Route: 041
     Dates: start: 20100901, end: 20100901
  15. RABEPRAZOLE SODIUM [Concomitant]
     Indication: PROPHYLAXIS
     Dosage: 10 MILLIGRAM
     Route: 048
     Dates: start: 20100803, end: 20110119
  16. ACETAMINOPHEN [Concomitant]
     Indication: PROPHYLAXIS
     Dosage: 400 MILLIGRAM
     Route: 048
     Dates: start: 20110117, end: 20110119
  17. ZOLPIDEM [Concomitant]
     Indication: PROPHYLAXIS
     Dosage: 5 MILLIGRAM
     Route: 048
     Dates: start: 20110117, end: 20110119
  18. REVLIMID [Suspect]
     Dosage: 10 MILLIGRAM
     Route: 048
     Dates: start: 20101129, end: 20101212
  19. PLATELETS [Concomitant]
     Indication: ILL-DEFINED DISORDER
     Dosage: 10 UNITS
     Route: 041
     Dates: start: 20100812, end: 20100812
  20. URALYT [Concomitant]
     Indication: ILL-DEFINED DISORDER
     Dosage: 3 TABLET
     Route: 048
     Dates: start: 20101019, end: 20101022
  21. URALYT [Concomitant]
     Dosage: 3 TABLET
     Route: 048
     Dates: start: 20110104, end: 20110119
  22. REVLIMID [Suspect]
     Indication: MULTIPLE MYELOMA
     Dosage: 10 MILLIGRAM
     Route: 048
     Dates: start: 20100803, end: 20100823
  23. DEXAMETHASONE [Suspect]
     Indication: MULTIPLE MYELOMA
     Dosage: 20 MILLIGRAM
     Route: 048
     Dates: start: 20100803, end: 20100806
  24. IMMUNE GLOBULIN INTRAVENOUS (HUMAN) [Concomitant]
     Indication: MULTIPLE MYELOMA
     Dosage: 10 GRAM
     Route: 041
     Dates: start: 20100810, end: 20100810
  25. IMMUNE GLOBULIN INTRAVENOUS (HUMAN) [Concomitant]
     Dosage: 10 GRAM
     Route: 041
     Dates: start: 20101206, end: 20101206
  26. ERYTHROCYTE [Concomitant]
     Indication: ILL-DEFINED DISORDER
     Dosage: 2 UNITS
     Route: 041
     Dates: start: 20100812, end: 20100812
  27. PLATELETS [Concomitant]
     Dosage: 10 UNITS
     Route: 041
     Dates: start: 20101102, end: 20110119
  28. REVLIMID [Suspect]
     Dosage: 10 MILLIGRAM
     Route: 048
     Dates: start: 20100831, end: 20100917
  29. DEXAMETHASONE [Suspect]
     Dosage: 20 MILLIGRAM
     Route: 048
     Dates: start: 20100819, end: 20100822
  30. GASMOTIN [Concomitant]
     Indication: ILL-DEFINED DISORDER
     Dosage: 15 MILLIGRAM
     Route: 048
     Dates: start: 20101008, end: 20110119

REACTIONS (7)
  - HERPES ZOSTER [None]
  - CONVULSION [None]
  - EYELID OEDEMA [None]
  - PLATELET COUNT DECREASED [None]
  - DYSPHONIA [None]
  - NEUTROPHIL COUNT DECREASED [None]
  - MUSCLE SPASMS [None]
